FAERS Safety Report 5475798-4 (Version None)
Quarter: 2007Q4

REPORT INFORMATION
  Report Type: 
  Country: None (occurrence: None)
  Receive Date: 20071003
  Receipt Date: 20070927
  Transmission Date: 20080405
  Serious: Yes (Hospitalization)
  Sender: FDA-Public Use
  Company Number: A0684719A

PATIENT
  Sex: Female

DRUGS (3)
  1. WELLBUTRIN SR [Suspect]
     Indication: DEPRESSION
     Dosage: 150MG TWICE PER DAY
     Route: 048
     Dates: start: 20020101, end: 20030101
  2. WELLBUTRIN XL [Suspect]
     Indication: DEPRESSION
     Dosage: 300MG PER DAY
     Route: 048
     Dates: start: 20030101, end: 20040801
  3. CONCURRENT MEDICATIONS [Concomitant]

REACTIONS (4)
  - AMNESIA [None]
  - BALANCE DISORDER [None]
  - COGNITIVE DISORDER [None]
  - GRAND MAL CONVULSION [None]
